FAERS Safety Report 6918465-X (Version None)
Quarter: 2010Q3

REPORT INFORMATION
  Report Type: 
  Country: None (occurrence: None)
  Receive Date: 20100722
  Receipt Date: 20090624
  Transmission Date: 20110219
  Serious: No
  Sender: FDA-Public Use
  Company Number: 2009-00371

PATIENT
  Age: 67 Year
  Sex: Female
  Weight: 63.5036 kg

DRUGS (3)
  1. ZICAM COLD REMEDY GEL SWABS [Suspect]
  2. SIMVASTATIN [Concomitant]
  3. TRAZODONE HCL [Concomitant]

REACTIONS (2)
  - AGEUSIA [None]
  - ANOSMIA [None]
